FAERS Safety Report 12884772 (Version 2)
Quarter: 2017Q4

REPORT INFORMATION
  Report Type: Report from Study
  Country: US (occurrence: US)
  Receive Date: 20161026
  Receipt Date: 20171101
  Transmission Date: 20180320
  Serious: Yes (Death, Hospitalization)
  Sender: FDA-Public Use
  Company Number: US-BIOGEN-2016BI00308608

PATIENT
  Age: 59 Year
  Sex: Female

DRUGS (2)
  1. TYSABRI [Suspect]
     Active Substance: NATALIZUMAB
     Indication: MULTIPLE SCLEROSIS
     Route: 042
     Dates: start: 20061115, end: 20090113
  2. TYSABRI [Suspect]
     Active Substance: NATALIZUMAB
     Route: 042
     Dates: end: 20090224

REACTIONS (2)
  - Death [Fatal]
  - Multiple sclerosis [Fatal]

NARRATIVE: CASE EVENT DATE: 201610
